FAERS Safety Report 19098875 (Version 1)
Quarter: 2021Q2

REPORT INFORMATION
  Report Type: Spontaneous
  Country: NL (occurrence: NL)
  Receive Date: 20210406
  Receipt Date: 20210406
  Transmission Date: 20210717
  Serious: Yes (Other)
  Sender: FDA-Public Use
  Company Number: NL-MYLANLABS-2021M1020469

PATIENT
  Age: 81 Year
  Sex: Male
  Weight: 74.4 kg

DRUGS (14)
  1. EUTHYROX [Concomitant]
     Active Substance: LEVOTHYROXINE SODIUM
     Dosage: 88 MICROGRAM (TABLET, 88 ?G (MICROGRAM)
  2. OMEPRAZOL                          /00661201/ [Concomitant]
     Active Substance: OMEPRAZOLE
     Dosage: 20 MILLIGRAM (GASTRO?RESISTANT CAPSULE, 20 MG (MILLIGRAM)
  3. METFORMINE                         /00082701/ [Concomitant]
     Active Substance: METFORMIN HYDROCHLORIDE
     Dosage: 1000 MILLIGRAM (TABLET, 1000 MG (MILLIGRAM)
  4. PARACETAMOL [Concomitant]
     Active Substance: ACETAMINOPHEN
     Dosage: 500 MILLIGRAM  (CAPSULE, 500 MG (MILLIGRAM)
  5. PERINDOPRIL [Concomitant]
     Active Substance: PERINDOPRIL
     Dosage: 2 MILLIGRAM (TABLET, 2 MG (MILLIGRAM))
  6. CARBIDOPA/LEVODOPA [Suspect]
     Active Substance: CARBIDOPA\LEVODOPA
     Indication: PRODUCT USED FOR UNKNOWN INDICATION
     Dosage: 5D2,5T
     Dates: start: 201905
  7. RIVASTIGMINE. [Suspect]
     Active Substance: RIVASTIGMINE
     Indication: PRODUCT USED FOR UNKNOWN INDICATION
     Dosage: 2D1T
     Dates: start: 202007
  8. ACETYLSALICYLZUUR [Concomitant]
     Active Substance: ASPIRIN
     Dosage: 80 MILLIGRAM (TABLET, 80 MG (MILLIGRAM)
  9. QUETIAPINE. [Concomitant]
     Active Substance: QUETIAPINE
     Dosage: 25 MILLIGRAM (FILM?COATED TABLET, 25 MG (MILLIGRAM)
  10. ROPINIROLE. [Suspect]
     Active Substance: ROPINIROLE
     Indication: PRODUCT USED FOR UNKNOWN INDICATION
     Dosage: 1D3T + 1D2T
     Dates: start: 202007
  11. PFIZER?BIONTECH COVID?19 VACCINE [Suspect]
     Active Substance: TOZINAMERAN
     Indication: COVID-19 IMMUNISATION
     Dosage: 1 DOSAGE FORM
     Dates: start: 20210204, end: 20210204
  12. TEMAZEPAM. [Concomitant]
     Active Substance: TEMAZEPAM
     Dosage: 10 MILLIGRAM (TABLET, 10 MG (MILLIGRAM)
  13. SIMVASTATINE [Concomitant]
     Active Substance: SIMVASTATIN
     Dosage: 20 MILLIGRAM FILM?COATED TABLET, 20 MG (MILLIGRAM)
  14. FERROFUMARAAT [Concomitant]
     Active Substance: FERROUS FUMARATE
     Dosage: 200 MILLIGRAM (TABLET, 200 MG (MILLIGRAM)

REACTIONS (3)
  - Anxiety [Not Recovered/Not Resolved]
  - Dissociation [Not Recovered/Not Resolved]
  - Hallucination [Not Recovered/Not Resolved]

NARRATIVE: CASE EVENT DATE: 20210204
